FAERS Safety Report 6297755-0 (Version None)
Quarter: 2009Q3

REPORT INFORMATION
  Report Type: 
  Country: None (occurrence: None)
  Receive Date: 20090805
  Receipt Date: 20090730
  Transmission Date: 20100115
  Serious: Yes (Death, Hospitalization)
  Sender: FDA-Public Use
  Company Number: CA-AMGEN-KDL210611

PATIENT
  Sex: Male

DRUGS (6)
  1. ENBREL [Suspect]
     Indication: RHEUMATOID ARTHRITIS
     Route: 058
     Dates: start: 20021221, end: 20070208
  2. METHOTREXATE [Suspect]
     Route: 048
  3. DIDROKIT [Concomitant]
  4. FOLIC ACID [Concomitant]
     Route: 048
  5. KINERET [Concomitant]
     Route: 058
  6. MELOXICAM [Concomitant]
     Route: 048

REACTIONS (13)
  - ABSCESS [None]
  - ANXIETY [None]
  - DECREASED APPETITE [None]
  - DEHYDRATION [None]
  - FATIGUE [None]
  - GANGRENE [None]
  - LUNG SQUAMOUS CELL CARCINOMA STAGE UNSPECIFIED [None]
  - METASTASES TO BONE [None]
  - NECROTISING FASCIITIS [None]
  - PAIN [None]
  - PULMONARY EMBOLISM [None]
  - RECTOSIGMOID CANCER [None]
  - SEPSIS [None]
